FAERS Safety Report 21886212 (Version 1)
Quarter: 2023Q1

REPORT INFORMATION
  Report Type: Report from Study
  Country: US (occurrence: US)
  Receive Date: 20230119
  Receipt Date: 20230119
  Transmission Date: 20230418
  Serious: Yes (Other)
  Sender: FDA-Public Use
  Company Number: US-OTSUKA-2023_001160

PATIENT
  Sex: Female
  Weight: 60.78 kg

DRUGS (1)
  1. CEDAZURIDINE\DECITABINE [Suspect]
     Active Substance: CEDAZURIDINE\DECITABINE
     Indication: Chronic myelomonocytic leukaemia
     Dosage: 1 DF, QD (DAYS 1 THROUGH 3 OF 6 WEEK CYCLE)
     Route: 048
     Dates: start: 20221204

REACTIONS (2)
  - Full blood count abnormal [Unknown]
  - Inappropriate schedule of product administration [Unknown]
